FAERS Safety Report 19599534 (Version 1)
Quarter: 2021Q3

REPORT INFORMATION
  Report Type: Spontaneous
  Country: IT (occurrence: IT)
  Receive Date: 20210722
  Receipt Date: 20210722
  Transmission Date: 20211014
  Serious: Yes (Hospitalization, Other)
  Sender: FDA-Public Use
  Company Number: NVSC2021IT162656

PATIENT
  Sex: Female

DRUGS (2)
  1. CARBAMAZEPINE. [Suspect]
     Active Substance: CARBAMAZEPINE
     Indication: PRODUCT USED FOR UNKNOWN INDICATION
     Dosage: UNK
     Route: 065
  2. PARACETAMOL [Suspect]
     Active Substance: ACETAMINOPHEN
     Indication: PRODUCT USED FOR UNKNOWN INDICATION
     Dosage: UNK
     Route: 065

REACTIONS (18)
  - Hypotension [Unknown]
  - Headache [Unknown]
  - Confusional state [Unknown]
  - Heart rate decreased [Unknown]
  - Acute respiratory failure [Unknown]
  - Nausea [Unknown]
  - Vomiting [Unknown]
  - Feeling abnormal [Unknown]
  - Dyspnoea [Unknown]
  - Circulatory collapse [Unknown]
  - Syncope [Unknown]
  - Malaise [Unknown]
  - Amnesia [Unknown]
  - Cardiac arrest [Unknown]
  - Lip oedema [Recovering/Resolving]
  - Pain in extremity [Unknown]
  - Fear [Unknown]
  - Angioedema [Unknown]
